FAERS Safety Report 5826372-9 (Version None)
Quarter: 2008Q3

REPORT INFORMATION
  Report Type: 
  Country: None (occurrence: None)
  Receive Date: 20080729
  Receipt Date: 20080715
  Transmission Date: 20090109
  Serious: No
  Sender: FDA-Public Use
  Company Number: US-BOEHRINGER INGELHEIM GMBH, GERMANY-2008-BP-11235BP

PATIENT
  Sex: Male

DRUGS (4)
  1. SPIRIVA [Suspect]
     Indication: CHRONIC OBSTRUCTIVE PULMONARY DISEASE
     Route: 055
     Dates: start: 20070101
  2. SPIRIVA [Suspect]
     Indication: PNEUMONIA
  3. UNSPECIFED ANTI-DEPRESSANT [Concomitant]
     Indication: DEPRESSION
     Route: 048
  4. SEROQUEL [Concomitant]
     Indication: INSOMNIA
     Route: 048

REACTIONS (1)
  - DYSPNOEA [None]
